FAERS Safety Report 6136100-8 (Version None)
Quarter: 2009Q1

REPORT INFORMATION
  Report Type: 
  Country: None (occurrence: None)
  Receive Date: 20090325
  Receipt Date: 20090308
  Transmission Date: 20090719
  Serious: Yes (Other)
  Sender: FDA-Public Use
  Company Number: 2007S1007253

PATIENT
  Age: 54 Year
  Sex: Female
  Weight: 108.8633 kg

DRUGS (5)
  1. PHOSPHOSODA FLAVOR NOT SPECIFIED [Suspect]
     Indication: SURGERY
     Dosage: 90 ML; TOTAL; PO
     Route: 048
     Dates: start: 20060613, end: 20060613
  2. LIPITOR [Concomitant]
  3. AMARYL [Concomitant]
  4. ACTOS [Concomitant]
  5. FORTAMET [Concomitant]

REACTIONS (6)
  - DIABETIC NEPHROPATHY [None]
  - DIALYSIS [None]
  - NEPHROCALCINOSIS [None]
  - RENAL FAILURE ACUTE [None]
  - RENAL FAILURE CHRONIC [None]
  - RENAL TUBULAR NECROSIS [None]
